FAERS Safety Report 15965894 (Version 2)
Quarter: 2019Q1

REPORT INFORMATION
  Report Type: Spontaneous
  Country: US (occurrence: US)
  Receive Date: 20190215
  Receipt Date: 20190312
  Transmission Date: 20190418
  Serious: No
  Sender: FDA-Public Use
  Company Number: US-PFIZER INC-2019061893

PATIENT
  Age: 60 Year
  Sex: Male
  Weight: 81 kg

DRUGS (3)
  1. LYRICA [Suspect]
     Active Substance: PREGABALIN
     Indication: LUMBAR RADICULOPATHY
     Dosage: 75 MG, 3X/DAY, (1 CAP PO QAM, 2 CAP PO QHS)
     Route: 048
  2. CYMBALTA [Concomitant]
     Active Substance: DULOXETINE HYDROCHLORIDE
     Dosage: 90 MG, DAILY, (30 MG 3 P.O DAILY)
     Route: 048
  3. NORCO [Concomitant]
     Active Substance: ACETAMINOPHEN\HYDROCODONE BITARTRATE
     Dosage: UNK, AS NEEDED  [10/325 1 P.O TWICE DAILY AS NEEDED]
     Route: 048

REACTIONS (2)
  - Drug effect incomplete [Unknown]
  - Depression [Unknown]
